FAERS Safety Report 6196260-X (Version None)
Quarter: 2009Q2

REPORT INFORMATION
  Report Type: 
  Country: None (occurrence: None)
  Receive Date: 20090515
  Receipt Date: 20080620
  Transmission Date: 20091009
  Serious: Yes (Hospitalization)
  Sender: FDA-Public Use
  Company Number: 08-201

PATIENT
  Age: 18 Year
  Sex: Male
  Weight: 81.6475 kg

DRUGS (4)
  1. HALDOL DECANOATE 50 JANSSEN PHARMACEUTICA N.V. [Suspect]
     Indication: SCHIZOPHRENIA
     Dosage: 5 MG IM PRN X 2
     Dates: start: 20080607
  2. FAZACLO ODT [Suspect]
     Indication: SCHIZOPHRENIA
     Dosage: 200MG QHS, 100MG QAM PO
     Route: 048
  3. DEPAKOTE [Concomitant]
  4. SEROQUEL [Concomitant]

REACTIONS (1)
  - NEUROLEPTIC MALIGNANT SYNDROME [None]
